FAERS Safety Report 7296433-9 (Version None)
Quarter: 2011Q1

REPORT INFORMATION
  Report Type: 
  Country: None (occurrence: None)
  Receive Date: 20110216
  Receipt Date: 20110208
  Transmission Date: 20110831
  Serious: Yes (Death)
  Sender: FDA-Public Use
  Company Number: JP-BRISTOL-MYERS SQUIBB COMPANY-15542244

PATIENT
  Age: 61 Year
  Sex: Male

DRUGS (3)
  1. PREDONINE [Suspect]
     Dosage: ONGOING
     Route: 048
  2. ORENCIA [Suspect]
     Indication: RHEUMATOID ARTHRITIS
     Route: 041
  3. METHOTREXATE [Suspect]
     Dosage: DISCONTINUED
     Route: 048
     Dates: start: 20101223, end: 20110106

REACTIONS (1)
  - PNEUMOCYSTIS JIROVECI PNEUMONIA [None]
